FAERS Safety Report 7798001-9 (Version None)
Quarter: 2011Q4

REPORT INFORMATION
  Report Type: 
  Country: None (occurrence: None)
  Receive Date: 20111004
  Receipt Date: 20111004
  Transmission Date: 20120403
  Serious: Yes (Hospitalization)
  Sender: FDA-Public Use
  Company Number: None

PATIENT
  Age: 62 Year
  Sex: Male
  Weight: 118.6 kg

DRUGS (1)
  1. INDOMETHACIN [Suspect]
     Indication: PAIN
     Dosage: 25 MG TID PO
     Route: 048
     Dates: start: 20110722, end: 20110727

REACTIONS (3)
  - CONDITION AGGRAVATED [None]
  - GASTRIC HAEMORRHAGE [None]
  - DIVERTICULUM [None]
